FAERS Safety Report 5129718-2 (Version None)
Quarter: 2006Q4

REPORT INFORMATION
  Report Type: 
  Country: None (occurrence: None)
  Receive Date: 20061018
  Receipt Date: 20061010
  Transmission Date: 20070319
  Serious: Yes (Other)
  Sender: FDA-Public Use
  Company Number: ZA-ROCHE-466788

PATIENT
  Age: 26 Year
  Sex: Male

DRUGS (12)
  1. CELLCEPT [Suspect]
     Indication: GRAFT VERSUS HOST DISEASE
     Route: 048
     Dates: start: 20050713
  2. CYCLOSPORINE [Suspect]
     Indication: GRAFT VERSUS HOST DISEASE
     Route: 048
  3. LOSEC [Concomitant]
     Route: 048
     Dates: start: 20050806
  4. PROZAC [Concomitant]
     Route: 048
     Dates: start: 20050817
  5. WARFARIN SODIUM [Concomitant]
     Dosage: AS PRESCRIBED.
     Route: 048
  6. SLOW MAG [Concomitant]
  7. ZOPICLONE [Concomitant]
  8. BEROCCA [Concomitant]
     Dosage: REPORTED AS ONE DAILY
  9. GASTROLYTE [Concomitant]
     Dosage: ONE SACHET DAILY
  10. PROBIOTIC [Concomitant]
  11. XANOR [Concomitant]
  12. AUGMENTIN [Concomitant]
     Dates: start: 20060928

REACTIONS (1)
  - MUSCLE SPASMS [None]
